FAERS Safety Report 6184004-7 (Version None)
Quarter: 2009Q2

REPORT INFORMATION
  Report Type: 
  Country: None (occurrence: None)
  Receive Date: 20090506
  Receipt Date: 20090506
  Transmission Date: 20091009
  Serious: Yes (Death, Hospitalization)
  Sender: FDA-Public Use
  Company Number: None

PATIENT
  Sex: Female
  Weight: 58.1 kg

DRUGS (1)
  1. SORAFENIB 200 MG TABLETS BAYER [Suspect]
     Indication: LUNG CANCER METASTATIC
     Dosage: 400MG BID PO
     Route: 048
     Dates: start: 20090409, end: 20090414

REACTIONS (7)
  - CEREBROVASCULAR ACCIDENT [None]
  - DEPRESSED LEVEL OF CONSCIOUSNESS [None]
  - DYSPNOEA [None]
  - HYPERCAPNIA [None]
  - HYPOVENTILATION [None]
  - PLEURITIC PAIN [None]
  - RESPIRATORY DISORDER [None]
